FAERS Safety Report 9119595 (Version 2)
Quarter: 2013Q1

REPORT INFORMATION
  Report Type: Spontaneous
  Country: NO (occurrence: NO)
  Receive Date: 20130207
  Receipt Date: 20130225
  Transmission Date: 20140127
  Serious: Yes (Hospitalization)
  Sender: FDA-Public Use
  Company Number: NO-PFIZER INC-2013050667

PATIENT
  Sex: Female

DRUGS (4)
  1. NEURONTIN [Suspect]
     Indication: FACIAL PAIN
     Dosage: UNK
  2. NEURONTIN [Suspect]
     Indication: PARAESTHESIA
  3. TEGRETOL [Suspect]
     Indication: FACIAL PAIN
     Dosage: UNK
  4. TEGRETOL [Suspect]
     Indication: PARAESTHESIA

REACTIONS (2)
  - Communication disorder [Unknown]
  - Off label use [Unknown]
